FAERS Safety Report 6728147-5 (Version None)
Quarter: 2010Q2

REPORT INFORMATION
  Report Type: 
  Country: None (occurrence: None)
  Receive Date: 20100517
  Receipt Date: 20100507
  Transmission Date: 20101027
  Serious: Yes (Death, Hospitalization)
  Sender: FDA-Public Use
  Company Number: A0793557A

PATIENT
  Age: 73 Year
  Sex: Male
  Weight: 150 kg

DRUGS (1)
  1. AVANDIA [Suspect]
     Indication: TYPE 2 DIABETES MELLITUS
     Dosage: 8MG PER DAY
     Route: 048
     Dates: start: 20000101

REACTIONS (2)
  - CARDIAC DISORDER [None]
  - MYOCARDIAL INFARCTION [None]
